FAERS Safety Report 9395805 (Version 1)
Quarter: 2013Q3

REPORT INFORMATION
  Report Type: Report from Study
  Country: US (occurrence: US)
  Receive Date: 20130711
  Receipt Date: 20130711
  Transmission Date: 20140515
  Serious: Yes (Hospitalization)
  Sender: FDA-Public Use
  Company Number: US-ABBOTT-13P-163-1113910-00

PATIENT
  Age: 34 Year
  Sex: Female
  Weight: 41 kg

DRUGS (3)
  1. HUMIRA [Suspect]
     Indication: CROHN^S DISEASE
     Route: 058
     Dates: start: 201212
  2. B6 [Concomitant]
     Indication: PRODUCT USED FOR UNKNOWN INDICATION
  3. MERCAPTOPURINE [Concomitant]
     Indication: PRODUCT USED FOR UNKNOWN INDICATION

REACTIONS (2)
  - Thrombosis [Recovered/Resolved]
  - Device related infection [Recovered/Resolved]
